FAERS Safety Report 4663940-4 (Version None)
Quarter: 2005Q2

REPORT INFORMATION
  Report Type: 
  Country: None (occurrence: None)
  Receive Date: 20050502
  Receipt Date: 20050222
  Transmission Date: 20051028
  Serious: Yes (Other)
  Sender: FDA-Public Use
  Company Number: 004195

PATIENT
  Age: 33 Year
  Sex: Female

DRUGS (1)
  1. CLARAVIS [Suspect]

REACTIONS (1)
  - UNINTENDED PREGNANCY [None]
